FAERS Safety Report 8392402-6 (Version None)
Quarter: 2012Q2

REPORT INFORMATION
  Report Type: 
  Country: None (occurrence: None)
  Receive Date: 20120529
  Receipt Date: 20120514
  Transmission Date: 20120825
  Serious: Yes (Other)
  Sender: FDA-Public Use
  Company Number: IN-WATSON-2012-08445

PATIENT
  Age: 16 Year
  Sex: Male

DRUGS (4)
  1. LITHIUM CARBONATE [Suspect]
     Indication: MOYAMOYA DISEASE
     Dosage: UNK
     Route: 065
  2. OLANZAPINE [Suspect]
     Indication: MOYAMOYA DISEASE
     Dosage: UNK
     Route: 065
  3. RISPERIDONE [Suspect]
     Indication: MOYAMOYA DISEASE
     Dosage: 4 MG, DAILY
     Route: 065
  4. TRIHEXYPHENIDYL HYDROCHLORIDE [Suspect]
     Indication: PARKINSON'S DISEASE
     Dosage: 4 MG, DAILY
     Route: 065

REACTIONS (1)
  - EXTRAPYRAMIDAL DISORDER [None]
